FAERS Safety Report 11080087 (Version 4)
Quarter: 2016Q1

REPORT INFORMATION
  Report Type: Report from Study
  Country: US (occurrence: US)
  Receive Date: 20150430
  Receipt Date: 20160129
  Transmission Date: 20160525
  Serious: Yes (Death, Hospitalization, Other)
  Sender: FDA-Public Use
  Company Number: US-ABBVIE-15K-163-1380939-00

PATIENT
  Age: 55 Year
  Sex: Female
  Weight: 72.64 kg

DRUGS (2)
  1. URSO FORTE [Concomitant]
     Active Substance: URSODIOL
     Indication: PRODUCT USED FOR UNKNOWN INDICATION
  2. HUMIRA [Suspect]
     Active Substance: ADALIMUMAB
     Indication: CROHN^S DISEASE
     Route: 065
     Dates: start: 20140825, end: 20150216

REACTIONS (17)
  - Abscess intestinal [Fatal]
  - Asthenia [Unknown]
  - Renal failure [Not Recovered/Not Resolved]
  - Injection site pain [Not Recovered/Not Resolved]
  - Transfusion [Unknown]
  - Blood pressure decreased [Not Recovered/Not Resolved]
  - Small intestinal obstruction [Not Recovered/Not Resolved]
  - Weight decreased [Unknown]
  - Dehydration [Unknown]
  - Pain [Unknown]
  - Drug ineffective [Unknown]
  - Loss of consciousness [Unknown]
  - Sepsis [Fatal]
  - Stomal hernia [Recovered/Resolved]
  - Nausea [Unknown]
  - Fatigue [Not Recovered/Not Resolved]
  - Feeling abnormal [Unknown]

NARRATIVE: CASE EVENT DATE: 20140825
